FAERS Safety Report 16284509 (Version 10)
Quarter: 2021Q1

REPORT INFORMATION
  Report Type: Report from Study
  Country: None (occurrence: NL)
  Receive Date: 20190508
  Receipt Date: 20210301
  Transmission Date: 20210419
  Serious: Yes (Other)
  Sender: FDA-Public Use
  Company Number: NL-ABBVIE-19S-114-2773281-00

PATIENT
  Age: 70 Year
  Sex: Female
  Weight: 69 kg

DRUGS (3)
  1. LAXANS [Concomitant]
     Indication: ABNORMAL FAECES
     Route: 065
  2. DUODOPA [Suspect]
     Active Substance: CARBIDOPA\LEVODOPA
     Indication: PARKINSON^S DISEASE
     Dosage: 16 HOUR ADMINISTRATION?MD 7.2, CD 2.1 ED 1.0
     Route: 050
     Dates: start: 20190328
  3. DUODOPA [Suspect]
     Active Substance: CARBIDOPA\LEVODOPA
     Dosage: MD: 7.2, CD: 1.5, ED: 1.0 16 HOURS
     Route: 050

REACTIONS (26)
  - Foot deformity [Not Recovered/Not Resolved]
  - Stress [Not Recovered/Not Resolved]
  - Parkinson^s disease [Recovered/Resolved]
  - Stoma site irritation [Not Recovered/Not Resolved]
  - Fibroma [Not Recovered/Not Resolved]
  - Dyskinesia [Not Recovered/Not Resolved]
  - Abnormal dreams [Recovered/Resolved]
  - Stoma complication [Not Recovered/Not Resolved]
  - Stoma site discharge [Not Recovered/Not Resolved]
  - Fear [Not Recovered/Not Resolved]
  - Muscle spasms [Not Recovered/Not Resolved]
  - Stoma site pain [Not Recovered/Not Resolved]
  - On and off phenomenon [Unknown]
  - Muscle rigidity [Not Recovered/Not Resolved]
  - Hypoaesthesia [Not Recovered/Not Resolved]
  - Dyschezia [Recovered/Resolved with Sequelae]
  - Medical device site pain [Not Recovered/Not Resolved]
  - Device allergy [Not Recovered/Not Resolved]
  - Musculoskeletal disorder [Not Recovered/Not Resolved]
  - Medical device site hyperaesthesia [Unknown]
  - Tension [Not Recovered/Not Resolved]
  - Neoplasm [Unknown]
  - Gastrectomy [Recovered/Resolved]
  - Decreased appetite [Not Recovered/Not Resolved]
  - Stoma site erythema [Not Recovered/Not Resolved]
  - Nerve compression [Not Recovered/Not Resolved]

NARRATIVE: CASE EVENT DATE: 2019
